FAERS Safety Report 21137285 (Version 1)
Quarter: 2022Q3

REPORT INFORMATION
  Report Type: Spontaneous
  Country: US (occurrence: US)
  Receive Date: 20220727
  Receipt Date: 20220727
  Transmission Date: 20221027
  Serious: No
  Sender: FDA-Public Use
  Company Number: US-GLAXOSMITHKLINE-USCH2022026104

PATIENT

DRUGS (2)
  1. NICORETTE SPEARMINT BURST [Suspect]
     Active Substance: NICOTINE
     Indication: Product used for unknown indication
     Dosage: UNK
     Dates: start: 2022, end: 2022
  2. NICORETTE SPEARMINT BURST [Suspect]
     Active Substance: NICOTINE
     Dosage: UNK
     Dates: start: 2022, end: 2022

REACTIONS (2)
  - Feeling abnormal [Recovered/Resolved]
  - Product complaint [Unknown]
